FAERS Safety Report 8531659 (Version 2)
Quarter: 2012Q4

REPORT INFORMATION
  Report Type: 
  Country: US (occurrence: US)
  Receive Date: 20120426
  Receipt Date: 20121109
  Transmission Date: 20130627
  Serious: Yes (Hospitalization)
  Sender: FDA-Public Use
  Company Number: US-ASTRAZENECA-2012SE26016

PATIENT
  Age: 53 Year
  Sex: Female

DRUGS (1)
  1. SYMBICORT PMDI [Suspect]
     Route: 055

REACTIONS (5)
  - Gastrointestinal disorder [Unknown]
  - Rhinorrhoea [Unknown]
  - Cough [Unknown]
  - Throat irritation [Unknown]
  - Intentional drug misuse [Unknown]
